FAERS Safety Report 6153268-8 (Version None)
Quarter: 2009Q2

REPORT INFORMATION
  Report Type: 
  Country: None (occurrence: None)
  Receive Date: 20090413
  Receipt Date: 20090408
  Transmission Date: 20091009
  Serious: Yes (Other)
  Sender: FDA-Public Use
  Company Number: US-AVENTIS-200911275US

PATIENT
  Sex: Male

DRUGS (5)
  1. LANTUS [Suspect]
     Route: 058
  2. LANTUS [Suspect]
     Dosage: DOSE: UNK
     Route: 058
  3. CHOLESTEROL- AND TRIGLYCERIDE REDUCERS [Concomitant]
     Dosage: DOSE: UNK
  4. ANTIHYPERTENSIVES [Concomitant]
     Dosage: DOSE: UNK
  5. UNKNOWN DRUG [Concomitant]
     Dosage: DOSE: UNK

REACTIONS (2)
  - CEREBROVASCULAR ACCIDENT [None]
  - MYOCARDIAL INFARCTION [None]
